FAERS Safety Report 6986140-1 (Version None)
Quarter: 2010Q3

REPORT INFORMATION
  Report Type: 
  Country: None (occurrence: None)
  Receive Date: 20100915
  Receipt Date: 20090825
  Transmission Date: 20110219
  Serious: Yes (Other)
  Sender: FDA-Public Use
  Company Number: US-WYE-H09601209

PATIENT
  Sex: Female
  Weight: 83.54 kg

DRUGS (3)
  1. PRISTIQ [Suspect]
     Indication: MAJOR DEPRESSION
     Route: 048
     Dates: start: 20090201, end: 20090415
  2. PREMARIN [Concomitant]
     Indication: ARTIFICIAL MENOPAUSE
     Dosage: 0.625 PRN
     Route: 048
  3. MULTI-VITAMINS [Concomitant]
     Dosage: UNKNOWN

REACTIONS (4)
  - ABDOMINAL PAIN [None]
  - ALANINE AMINOTRANSFERASE INCREASED [None]
  - ASPARTATE AMINOTRANSFERASE INCREASED [None]
  - NAUSEA [None]
